FAERS Safety Report 25274081 (Version 3)
Quarter: 2025Q2

REPORT INFORMATION
  Report Type: Spontaneous
  Country: US (occurrence: US)
  Receive Date: 20250506
  Receipt Date: 20250513
  Transmission Date: 20250717
  Serious: Yes (Other)
  Sender: ELI LILLY AND COMPANY
  Company Number: US-ELI_LILLY_AND_COMPANY-US202504022534

PATIENT
  Age: 75 Year
  Sex: Male

DRUGS (16)
  1. MOUNJARO [Suspect]
     Active Substance: TIRZEPATIDE
     Indication: Weight control
     Route: 065
     Dates: start: 202401
  2. MOUNJARO [Suspect]
     Active Substance: TIRZEPATIDE
     Indication: Weight control
     Route: 065
     Dates: start: 202401
  3. MOUNJARO [Suspect]
     Active Substance: TIRZEPATIDE
     Indication: Weight control
     Route: 065
     Dates: start: 202401
  4. MOUNJARO [Suspect]
     Active Substance: TIRZEPATIDE
     Indication: Weight control
     Route: 065
     Dates: start: 202401
  5. MOUNJARO [Suspect]
     Active Substance: TIRZEPATIDE
     Indication: Type 1 diabetes mellitus
  6. MOUNJARO [Suspect]
     Active Substance: TIRZEPATIDE
     Indication: Type 1 diabetes mellitus
  7. MOUNJARO [Suspect]
     Active Substance: TIRZEPATIDE
     Indication: Type 1 diabetes mellitus
  8. MOUNJARO [Suspect]
     Active Substance: TIRZEPATIDE
     Indication: Type 1 diabetes mellitus
  9. MOUNJARO [Suspect]
     Active Substance: TIRZEPATIDE
     Indication: Type 1 diabetes mellitus
     Route: 065
  10. MOUNJARO [Suspect]
     Active Substance: TIRZEPATIDE
     Indication: Type 1 diabetes mellitus
     Route: 065
  11. MOUNJARO [Suspect]
     Active Substance: TIRZEPATIDE
     Indication: Type 1 diabetes mellitus
     Route: 065
  12. MOUNJARO [Suspect]
     Active Substance: TIRZEPATIDE
     Indication: Type 1 diabetes mellitus
     Route: 065
  13. MOUNJARO [Suspect]
     Active Substance: TIRZEPATIDE
     Indication: Weight control
  14. MOUNJARO [Suspect]
     Active Substance: TIRZEPATIDE
     Indication: Weight control
  15. MOUNJARO [Suspect]
     Active Substance: TIRZEPATIDE
     Indication: Weight control
  16. MOUNJARO [Suspect]
     Active Substance: TIRZEPATIDE
     Indication: Weight control

REACTIONS (18)
  - Pneumonia aspiration [Recovering/Resolving]
  - Lung abscess [Unknown]
  - Pulmonary oedema [Unknown]
  - Oropharyngeal discomfort [Not Recovered/Not Resolved]
  - Epiglottis dysfunction [Unknown]
  - Speech disorder [Recovering/Resolving]
  - Dysphagia [Recovering/Resolving]
  - Hypoaesthesia [Unknown]
  - Mood swings [Not Recovered/Not Resolved]
  - Irritability [Not Recovered/Not Resolved]
  - Eye disorder [Unknown]
  - Pancreatic disorder [Unknown]
  - Off label use [Unknown]
  - Cognitive disorder [Unknown]
  - Vomiting [Not Recovered/Not Resolved]
  - Nausea [Not Recovered/Not Resolved]
  - Fatigue [Not Recovered/Not Resolved]
  - Diarrhoea [Not Recovered/Not Resolved]

NARRATIVE: CASE EVENT DATE: 20240901
